FAERS Safety Report 17913404 (Version 1)
Quarter: 2020Q2

REPORT INFORMATION
  Report Type: Spontaneous
  Country: US (occurrence: US)
  Receive Date: 20200618
  Receipt Date: 20200618
  Transmission Date: 20200714
  Serious: No
  Sender: FDA-Public Use
  Company Number: US-THERAPEUTICSMD-2020TMD02037

PATIENT
  Age: 78 Year
  Sex: Female
  Weight: 68.03 kg

DRUGS (2)
  1. IMVEXXY [Suspect]
     Active Substance: ESTRADIOL
     Indication: BLADDER PROLAPSE
     Dosage: 10 ?G, 1X/WEEK, BEFORE BED
     Route: 067
     Dates: start: 20200312
  2. UNSPECIFIED MEDICATIONS [Concomitant]
     Active Substance: UNSPECIFIED INGREDIENT

REACTIONS (4)
  - Visual acuity reduced [Not Recovered/Not Resolved]
  - Off label use [Unknown]
  - Vitreous floaters [Not Recovered/Not Resolved]
  - Vision blurred [Not Recovered/Not Resolved]

NARRATIVE: CASE EVENT DATE: 202003
